FAERS Safety Report 15974844 (Version 1)
Quarter: 2019Q1

REPORT INFORMATION
  Report Type: Spontaneous
  Country: US (occurrence: US)
  Receive Date: 20190218
  Receipt Date: 20190218
  Transmission Date: 20190418
  Serious: Yes (Other)
  Sender: FDA-Public Use
  Company Number: US-LUPIN PHARMACEUTICALS INC.-2019-00969

PATIENT
  Age: 25 Year
  Sex: Female
  Weight: 113 kg

DRUGS (2)
  1. CEFTRIAXONE INJECTION [Suspect]
     Active Substance: CEFTRIAXONE SODIUM
     Indication: GONORRHOEA
     Dosage: UNK UNK, SINGLE
     Route: 030
     Dates: start: 201809, end: 201809
  2. CEFTRIAXONE INJECTION [Suspect]
     Active Substance: CEFTRIAXONE SODIUM
     Indication: VIRAL INFECTION
     Dosage: UNK UNK, SINGLE
     Route: 030
     Dates: start: 20181019, end: 20181019

REACTIONS (4)
  - Dyspnoea [Unknown]
  - Feeling hot [Recovered/Resolved]
  - Recalled product administered [Unknown]
  - Injection site mass [Recovered/Resolved]

NARRATIVE: CASE EVENT DATE: 201809
